FAERS Safety Report 13102798 (Version 2)
Quarter: 2017Q2

REPORT INFORMATION
  Report Type: Report from Study
  Country: DE (occurrence: DE)
  Receive Date: 20170110
  Receipt Date: 20170609
  Transmission Date: 20170830
  Serious: Yes (Death)
  Sender: FDA-Public Use
  Company Number: DE-PFIZER INC-2017010191

PATIENT

DRUGS (4)
  1. PACLITAXEL. [Suspect]
     Active Substance: PACLITAXEL
     Indication: NEOPLASM
     Dosage: 30-100MG/M2,  (D1 AND D8) EVERY 3 WEEKS
     Route: 041
  2. FOLIC ACID. [Concomitant]
     Active Substance: FOLIC ACID
     Indication: PREMEDICATION
     Dosage: UNK
  3. VITAMIN B12 [Concomitant]
     Active Substance: CYANOCOBALAMIN
     Indication: PREMEDICATION
  4. PEMETREXED. [Suspect]
     Active Substance: PEMETREXED
     Indication: NEOPLASM
     Dosage: 400-500 MG/M2, D8 PRIOR TO PACLITAXEL), EVERY 3 WEEKS
     Route: 041

REACTIONS (1)
  - Gastric ulcer haemorrhage [Fatal]
